FAERS Safety Report 5098682-7 (Version None)
Quarter: 2006Q3

REPORT INFORMATION
  Report Type: 
  Country: None (occurrence: None)
  Receive Date: 20060907
  Receipt Date: 20060831
  Transmission Date: 20061208
  Serious: Yes (Hospitalization)
  Sender: FDA-Public Use
  Company Number: US-BAYER-200613719BCC

PATIENT
  Age: 88 Year
  Sex: Female
  Weight: 91 kg

DRUGS (5)
  1. PHILLIPS MILKS OF MAGNESIA CHERRY [Suspect]
     Indication: CONSTIPATION
     Route: 048
     Dates: start: 19810101
  2. HIGH BLOOD PRESSURE MEDICATION [Concomitant]
  3. PLAVIX [Concomitant]
  4. IRON SUPPLEMENT [Concomitant]
  5. NITROGLYCERIN [Concomitant]

REACTIONS (1)
  - RECTAL HAEMORRHAGE [None]
